FAERS Safety Report 9820964 (Version 6)
Quarter: 2015Q1

REPORT INFORMATION
  Report Type: Spontaneous
  Country: US (occurrence: US)
  Receive Date: 20140116
  Receipt Date: 20150108
  Transmission Date: 20150721
  Serious: Yes (Death, Hospitalization)
  Sender: FDA-Public Use
  Company Number: US-ACTELION-A-NJ2014-93773

PATIENT
  Age: 55 Year
  Sex: Male

DRUGS (4)
  1. OPSUMIT [Suspect]
     Active Substance: MACITENTAN
     Indication: PULMONARY ARTERIAL HYPERTENSION
     Dosage: 10 MG, QD
     Route: 048
     Dates: start: 20131218
  2. REMODULIN [Concomitant]
     Active Substance: TREPROSTINIL
     Dosage: 21 NG/KG, PER MIN
     Route: 042
     Dates: start: 20120308
  3. LETAIRIS [Concomitant]
     Active Substance: AMBRISENTAN
  4. ADCIRCA [Concomitant]
     Active Substance: TADALAFIL

REACTIONS (4)
  - Gastrointestinal haemorrhage [Unknown]
  - Anaemia [Unknown]
  - Death [Fatal]
  - Dyspnoea [Unknown]

NARRATIVE: CASE EVENT DATE: 20140103
